FAERS Safety Report 14715077 (Version 1)
Quarter: 2018Q1

REPORT INFORMATION
  Report Type: Spontaneous
  Country: US (occurrence: US)
  Receive Date: 20180330
  Receipt Date: 20180330
  Transmission Date: 20180509
  Serious: No
  Sender: FDA-Public Use
  Company Number: None

PATIENT
  Age: 63 Year
  Sex: Male

DRUGS (1)
  1. HARVONI [Suspect]
     Active Substance: LEDIPASVIR\SOFOSBUVIR
     Indication: CHRONIC HEPATITIS C
     Route: 048
     Dates: start: 20180125

REACTIONS (6)
  - Fatigue [None]
  - Multiple allergies [None]
  - Epistaxis [None]
  - Limb discomfort [None]
  - Migraine [None]
  - Lip haemorrhage [None]

NARRATIVE: CASE EVENT DATE: 20180309
